FAERS Safety Report 10427362 (Version 1)
Quarter: 2014Q3

REPORT INFORMATION
  Report Type: Spontaneous
  Country: MY (occurrence: MY)
  Receive Date: 20140903
  Receipt Date: 20140903
  Transmission Date: 20150326
  Serious: Yes (Other)
  Sender: FDA-Public Use
  Company Number: MY-BAYER-2014-126509

PATIENT
  Age: 70 Year
  Sex: Female

DRUGS (1)
  1. NEXAVAR FILM-COATED TABLETS 200MG [Suspect]
     Active Substance: SORAFENIB
     Indication: HEPATOCELLULAR CARCINOMA
     Dosage: 200 MG, BID
     Route: 048

REACTIONS (5)
  - Left ventricular dysfunction [None]
  - Ejection fraction decreased [None]
  - Left atrial dilatation [None]
  - Supraventricular tachycardia [None]
  - Hypertension [None]
